FAERS Safety Report 12595259 (Version 1)
Quarter: 2016Q3

REPORT INFORMATION
  Report Type: Report from Study
  Country: US (occurrence: US)
  Receive Date: 20160726
  Receipt Date: 20160726
  Transmission Date: 20161109
  Serious: Yes (Other)
  Sender: FDA-Public Use
  Company Number: US-CORCEPT THERAPEUTICS INC.-US-2015CRT000391

PATIENT

DRUGS (1)
  1. KORLYM [Suspect]
     Active Substance: MIFEPRISTONE
     Indication: CUSHING^S SYNDROME
     Dosage: 600 MG, DAILY
     Dates: start: 201410

REACTIONS (20)
  - Feeling abnormal [Unknown]
  - Rash [Unknown]
  - Nasopharyngitis [Unknown]
  - Weight decreased [Unknown]
  - Renin decreased [Not Recovered/Not Resolved]
  - Arthritis [Unknown]
  - Nausea [Unknown]
  - Arthralgia [Not Recovered/Not Resolved]
  - Tinnitus [Unknown]
  - Fatigue [Not Recovered/Not Resolved]
  - Alopecia [Recovered/Resolved]
  - Osteoarthritis [Not Recovered/Not Resolved]
  - Lichen planus [None]
  - Hypertension [Unknown]
  - Decreased appetite [Unknown]
  - Thyroid disorder [Not Recovered/Not Resolved]
  - Vertigo [Unknown]
  - Memory impairment [Unknown]
  - Oedema peripheral [Recovered/Resolved]
  - Thirst [Unknown]

NARRATIVE: CASE EVENT DATE: 2014
